FAERS Safety Report 25703815 (Version 1)
Quarter: 2025Q3

REPORT INFORMATION
  Report Type: Report from Study
  Country: US (occurrence: US)
  Receive Date: 20250820
  Receipt Date: 20250820
  Transmission Date: 20251021
  Serious: No
  Sender: SUNOVION
  Company Number: US-SUMITOMO PHARMA SWITZERLAND GMBH-2025SPA010416

PATIENT
  Age: 82 Year
  Sex: Male

DRUGS (4)
  1. ORGOVYX [Suspect]
     Active Substance: RELUGOLIX
     Indication: Prostate cancer
     Route: 048
     Dates: start: 20250701, end: 20250701
  2. ORGOVYX [Suspect]
     Active Substance: RELUGOLIX
     Route: 048
  3. LATANOPROST [Concomitant]
     Active Substance: LATANOPROST
  4. LOSARTAN [Concomitant]
     Active Substance: LOSARTAN

REACTIONS (1)
  - Pollakiuria [Unknown]
